FAERS Safety Report 7035372-5 (Version None)
Quarter: 2010Q4

REPORT INFORMATION
  Report Type: 
  Country: None (occurrence: None)
  Receive Date: 20101008
  Receipt Date: 20081110
  Transmission Date: 20110411
  Serious: Yes (Death, Hospitalization)
  Sender: FDA-Public Use
  Company Number: PHHY2008US37014

PATIENT
  Sex: Female
  Weight: 68 kg

DRUGS (1)
  1. EXJADE [Suspect]
     Dosage: 1000 UNK, BID
     Route: 048
     Dates: start: 20081105

REACTIONS (6)
  - ABDOMINAL DISCOMFORT [None]
  - DEATH [None]
  - DEHYDRATION [None]
  - DIARRHOEA [None]
  - NAUSEA [None]
  - RENAL DISORDER [None]
